FAERS Safety Report 13734987 (Version 1)
Quarter: 2017Q3

REPORT INFORMATION
  Report Type: Spontaneous
  Country: US (occurrence: US)
  Receive Date: 20170710
  Receipt Date: 20170710
  Transmission Date: 20171127
  Serious: No
  Sender: FDA-Public Use
  Company Number: US-009507513-1706USA007121

PATIENT
  Age: 60 Year
  Sex: Female

DRUGS (10)
  1. SINEMET [Suspect]
     Active Substance: CARBIDOPA\LEVODOPA
     Dosage: 25/100 MG AS TOTAL DAILY DOSE (1 TABLET 4 TIMES A DAY, A SNEEDED)
     Route: 048
  2. REMERON [Suspect]
     Active Substance: MIRTAZAPINE
     Indication: MENTAL DISORDER
     Dosage: 30 MG, AS TOTAL DAILY DOSE
  3. GABAPENTIN. [Suspect]
     Active Substance: GABAPENTIN
     Indication: PAIN
     Dosage: 3600 MG DAILY, AND PLUS 300 MG AS NEEDED
  4. DEXTROAMPHETAMINE SULFATE. [Suspect]
     Active Substance: DEXTROAMPHETAMINE SULFATE
     Indication: MENTAL DISORDER
     Dosage: 40 MG, AS TOTAL DAILY DOSE
  5. ACETAMINOPHEN. [Suspect]
     Active Substance: ACETAMINOPHEN
     Indication: PAIN
     Dosage: 325 MG, AS TOTAL DAILY DOSE, AS NEEDED
  6. BACLOFEN. [Suspect]
     Active Substance: BACLOFEN
     Indication: PAIN
     Dosage: 10 MG 3 TIMES A DAY AND 20 MG AT BED TIME
  7. CYMBALTA [Suspect]
     Active Substance: DULOXETINE HYDROCHLORIDE
     Indication: MENTAL DISORDER
     Dosage: 90 MG, AS TOTAL DAILY DOSE
  8. SINEMET [Suspect]
     Active Substance: CARBIDOPA\LEVODOPA
     Indication: PARKINSON^S DISEASE
     Dosage: 150/600 MG AS TOTAL DAILY DOSE
     Route: 048
  9. SINEMET [Suspect]
     Active Substance: CARBIDOPA\LEVODOPA
     Dosage: 50/200 MG AS TOTAL DAILY DOSE, (1 TABLET AT BEDTIME)
  10. IBUPROFEN. [Suspect]
     Active Substance: IBUPROFEN
     Indication: PAIN
     Dosage: 2400 MG AS TOTAL DAILY DOSE

REACTIONS (1)
  - Drug ineffective [Unknown]
